FAERS Safety Report 24047744 (Version 1)
Quarter: 2024Q3

REPORT INFORMATION
  Report Type: Spontaneous
  Country: CN (occurrence: CN)
  Receive Date: 20240703
  Receipt Date: 20240703
  Transmission Date: 20241017
  Serious: Yes (Hospitalization, Other)
  Sender: DAIICHI
  Company Number: CN-DAIICHI SANKYO, INC.-DSJ-2024-129604

PATIENT
  Age: 50 Year
  Sex: Female
  Weight: 61 kg

DRUGS (1)
  1. TRASTUZUMAB DERUXTECAN [Suspect]
     Active Substance: TRASTUZUMAB DERUXTECAN
     Indication: Chemotherapy
     Dosage: 300 MG, QD
     Route: 041
     Dates: start: 20240505, end: 20240505

REACTIONS (1)
  - Myelosuppression [Recovering/Resolving]

NARRATIVE: CASE EVENT DATE: 20240618
